FAERS Safety Report 25813571 (Version 2)
Quarter: 2025Q4

REPORT INFORMATION
  Report Type: Report from Study
  Country: None (occurrence: JP)
  Receive Date: 20250917
  Receipt Date: 20251015
  Transmission Date: 20260118
  Serious: Yes (Hospitalization)
  Sender: ALNYLAM PHARMACEUTICALS
  Company Number: JP-ALNYLAM PHARMACEUTICALS, INC.-ALN-2025-005610

PATIENT
  Age: 72 Year
  Weight: 39 kg

DRUGS (8)
  1. AMVUTTRA [Suspect]
     Active Substance: VUTRISIRAN
     Indication: Hereditary neuropathic amyloidosis
     Dosage: 25 MG, ONCE EVERY 3 MONTHS
  2. AMVUTTRA [Suspect]
     Active Substance: VUTRISIRAN
     Dosage: 25 MG, ONCE EVERY 3 MONTHS
  3. VITAMINS [Concomitant]
     Active Substance: VITAMINS
     Indication: Vitamin supplementation
     Dosage: 1 GRAM
  4. CALCIUM CHLORIDE\MAGNESIUM CHLORIDE\POTASSIUM CHLORIDE\SODIUM ACETATE\ [Concomitant]
     Active Substance: CALCIUM CHLORIDE\MAGNESIUM CHLORIDE\POTASSIUM CHLORIDE\SODIUM ACETATE\SODIUM CHLORIDE
     Indication: Gastroenteritis
     Dosage: 500 MILLILITER
  5. METOCLOPRAMIDE [Concomitant]
     Active Substance: METOCLOPRAMIDE
     Indication: Gastroenteritis
     Dosage: 10 MILLIGRAM
     Route: 065
  6. ACETAMINOPHEN [Concomitant]
     Active Substance: ACETAMINOPHEN
     Indication: Gastroenteritis
     Dosage: 600 MILLIGRAM
  7. NAUZELIN [Concomitant]
     Active Substance: DOMPERIDONE
     Indication: Gastroenteritis
     Dosage: 30 MILLIGRAM
  8. METOCLOPRAMIDE [Concomitant]
     Active Substance: METOCLOPRAMIDE
     Indication: Gastroenteritis
     Dosage: 5 MILLIGRAM

REACTIONS (3)
  - COVID-19 pneumonia [Recovered/Resolved with Sequelae]
  - Immobilisation syndrome [Not Recovered/Not Resolved]
  - Gastroenteritis [Recovering/Resolving]
